FAERS Safety Report 21168492 (Version 3)
Quarter: 2022Q3

REPORT INFORMATION
  Report Type: Report from Study
  Country: US (occurrence: US)
  Receive Date: 20220803
  Receipt Date: 20220819
  Transmission Date: 20221027
  Serious: Yes (Other)
  Sender: FDA-Public Use
  Company Number: US-BRISTOL-MYERS SQUIBB COMPANY-2022-081022

PATIENT
  Age: 62 Year
  Sex: Female

DRUGS (1)
  1. CAMZYOS [Suspect]
     Active Substance: MAVACAMTEN
     Indication: Hypertrophic cardiomyopathy
     Dosage: DOSE : 5MG;     FREQ : UNAVAILABLE
     Route: 048
     Dates: start: 20220714, end: 20220724

REACTIONS (2)
  - Dyspnoea [Recovered/Resolved]
  - Organising pneumonia [Unknown]

NARRATIVE: CASE EVENT DATE: 20220724
